FAERS Safety Report 7876622-2 (Version None)
Quarter: 2011Q4

REPORT INFORMATION
  Report Type: 
  Country: None (occurrence: None)
  Receive Date: 20111031
  Receipt Date: 20100428
  Transmission Date: 20120403
  Serious: No
  Sender: FDA-Public Use
  Company Number: US-BAYER-201021078NA

PATIENT
  Age: 53 Year
  Sex: Female

DRUGS (2)
  1. VERAMYST [Concomitant]
  2. AVELOX [Suspect]
     Indication: UPPER RESPIRATORY TRACT INFECTION
     Dosage: 1 DF, QD
     Route: 048
     Dates: start: 20100312, end: 20100324

REACTIONS (1)
  - PALPITATIONS [None]
